FAERS Safety Report 20929055 (Version 1)
Quarter: 2022Q2

REPORT INFORMATION
  Report Type: Spontaneous
  Country: GB (occurrence: GB)
  Receive Date: 20220608
  Receipt Date: 20220608
  Transmission Date: 20220721
  Serious: Yes (Other)
  Sender: FDA-Public Use
  Company Number: GB-AUROBINDO-AUR-APL-2022-020448

PATIENT
  Age: 83 Year
  Sex: Female
  Weight: 73 kg

DRUGS (8)
  1. NITROFURANTOIN [Suspect]
     Active Substance: NITROFURANTOIN
     Indication: Product used for unknown indication
     Dosage: UNK
     Route: 048
     Dates: start: 20220520
  2. BENDROFLUMETHIAZIDE [Concomitant]
     Active Substance: BENDROFLUMETHIAZIDE
     Indication: Product used for unknown indication
     Dosage: 1 DOSAGE FORM, ONCE A DAY, IN MORNING
     Route: 065
     Dates: start: 20211201
  3. COCODAMOL [Concomitant]
     Active Substance: ACETAMINOPHEN\CODEINE PHOSPHATE
     Indication: Product used for unknown indication
     Dosage: UNK, TAKE 1-2 AT NIGHT FOR LEG ISSUE
     Route: 065
     Dates: start: 20211201
  4. IBUPROFEN [Concomitant]
     Active Substance: IBUPROFEN
     Indication: Product used for unknown indication
     Dosage: 1 DOSAGE FORM, ONCE A DAY, APPLY
     Route: 065
     Dates: start: 20211201
  5. GAVISCON [Concomitant]
     Active Substance: ALUMINUM HYDROXIDE\MAGNESIUM CARBONATE
     Indication: Product used for unknown indication
     Dosage: UNK, USE AS DIRECTED
     Route: 065
     Dates: start: 20220523
  6. LEVOTHYROXINE [Concomitant]
     Active Substance: LEVOTHYROXINE
     Indication: Product used for unknown indication
     Dosage: UNK,EACH MORNING
     Route: 065
     Dates: start: 20211201
  7. AMDINOCILLIN PIVOXIL [Concomitant]
     Active Substance: AMDINOCILLIN PIVOXIL
     Indication: Product used for unknown indication
     Dosage: UNK,WOMEN:IMMEDIATELY, THE...
     Route: 065
     Dates: start: 20220523
  8. ZOPICLONE [Concomitant]
     Active Substance: ZOPICLONE
     Indication: Sleep disorder
     Dosage: UNK,AT NIGHT
     Route: 065
     Dates: start: 20220303, end: 20220317

REACTIONS (2)
  - Dyspepsia [Recovering/Resolving]
  - Dysgeusia [Unknown]
